FAERS Safety Report 15826116 (Version 1)
Quarter: 2019Q1

REPORT INFORMATION
  Report Type: Spontaneous
  Country: CA (occurrence: US)
  Receive Date: 20190115
  Receipt Date: 20190115
  Transmission Date: 20190417
  Serious: Yes (Other)
  Sender: FDA-Public Use
  Company Number: CA-REGENERON PHARMACEUTICALS, INC.-2017-30210

PATIENT

DRUGS (3)
  1. ZYMAR [Concomitant]
     Active Substance: GATIFLOXACIN
     Indication: MEDICAL PROCEDURE
  2. BETADINE [Concomitant]
     Active Substance: POVIDONE-IODINE
     Indication: INFECTION PROPHYLAXIS
  3. EYLEA [Suspect]
     Active Substance: AFLIBERCEPT
     Indication: PRODUCT USED FOR UNKNOWN INDICATION
     Dosage: TOTAL 3 DOSES PRIOR THE EVENT
     Dates: start: 20170628, end: 20170628

REACTIONS (2)
  - Inadequate aseptic technique in use of product [Unknown]
  - Eye inflammation [Unknown]
